FAERS Safety Report 5867349-7 (Version None)
Quarter: 2008Q3

REPORT INFORMATION
  Report Type: 
  Country: None (occurrence: None)
  Receive Date: 20080902
  Receipt Date: 20080822
  Transmission Date: 20090109
  Serious: Yes (Other)
  Sender: FDA-Public Use
  Company Number: US-JNJFOC-20080601617

PATIENT
  Sex: Female
  Weight: 54.89 kg

DRUGS (29)
  1. LEVAQUIN [Suspect]
     Indication: SINUSITIS
     Route: 048
  2. PREDNISONE TAB [Interacting]
     Route: 048
  3. PREDNISONE TAB [Interacting]
     Route: 048
  4. PREDNISONE TAB [Interacting]
     Indication: ASTHMA
     Route: 048
  5. PREDNISONE TAB [Interacting]
     Indication: SINUSITIS
     Route: 048
  6. AMBIEN [Interacting]
     Route: 048
  7. AMBIEN [Interacting]
     Route: 048
  8. AMBIEN [Interacting]
     Indication: INSOMNIA
     Route: 048
  9. MULTI-VITAMINS [Concomitant]
     Route: 065
  10. EPIPEN [Concomitant]
     Dosage: 2 PACK INJECTION SOLUTION AUTO INJECTION 0.3MG/0.3ML INJECTION, SOLUTION (USE AS DIRECTED)
  11. LYRICA [Concomitant]
     Route: 048
  12. ADVAIR DISKUS 100/50 [Concomitant]
     Indication: ASTHMA
     Dosage: 500/50 DRY POWDER (1 INHALATION BID)
     Route: 055
  13. ALBUTEROL [Concomitant]
     Indication: ASTHMA
     Route: 065
  14. ALBUTEROL [Concomitant]
     Indication: RHINITIS ALLERGIC
     Dosage: 90 MCG/INH AEROSOL (2 PUFFS QID PRN)
     Route: 065
  15. ALLEGRA [Concomitant]
     Indication: RHINITIS ALLERGIC
     Dosage: 180 TABLET (1 TAB PO QD)
     Route: 048
  16. ASPIRIN [Concomitant]
     Route: 048
  17. ASTELIN [Concomitant]
     Indication: RHINITIS ALLERGIC
     Dosage: 137 MCG/INH SPRAY (2 SPRAYS EACH SIDE)
     Route: 065
  18. FISH OIL [Concomitant]
     Route: 048
  19. FLONASE [Concomitant]
     Dosage: 0.05 MG/INH SPRAY (2 SPRAYS EACH SIDE )
     Route: 065
  20. FOSAMAX [Concomitant]
     Dosage: (ONE PO Q WEEK)
     Route: 048
  21. LIPITOR [Concomitant]
     Route: 065
  22. NASONEX [Concomitant]
     Dosage: 50 MCG/INH SPRAY (2 SPRAYS EACH SIDE)
     Route: 065
  23. NEXIUM [Concomitant]
     Indication: GASTROOESOPHAGEAL REFLUX DISEASE
     Route: 048
  24. MULTIVITAMIN [Concomitant]
     Route: 065
  25. REQUIP [Concomitant]
     Dosage: 1 TAB PO QHS
     Route: 048
  26. SIMVASTATIN [Concomitant]
     Route: 048
  27. SINGULAIR [Concomitant]
     Indication: ASTHMA
     Dosage: 1 TAB PO QHS
     Route: 048
  28. ZANTAC [Concomitant]
     Indication: GASTROOESOPHAGEAL REFLUX DISEASE
     Dosage: 1 TAB PO HS
     Route: 048
  29. XOLAIR [Concomitant]
     Indication: ASTHMA
     Dosage: 1.2 CC IN EACH SHOULDER

REACTIONS (9)
  - ASTHMA [None]
  - DIZZINESS [None]
  - DRUG INTERACTION [None]
  - HALLUCINATION [None]
  - INSOMNIA [None]
  - NAUSEA [None]
  - NERVOUSNESS [None]
  - PSYCHOMOTOR HYPERACTIVITY [None]
  - UPPER RESPIRATORY TRACT INFECTION [None]
